FAERS Safety Report 6830756-X (Version None)
Quarter: 2010Q3

REPORT INFORMATION
  Report Type: 
  Country: None (occurrence: None)
  Receive Date: 20100712
  Receipt Date: 20100628
  Transmission Date: 20110219
  Serious: Yes (Other)
  Sender: FDA-Public Use
  Company Number: PHHY2010SE42206

PATIENT
  Sex: Female

DRUGS (5)
  1. RITALIN [Suspect]
     Indication: ATTENTION DEFICIT/HYPERACTIVITY DISORDER
     Dosage: 10 MG, BID
     Route: 048
     Dates: start: 20100601
  2. RITALIN [Suspect]
     Dosage: 10 MG, TID
     Route: 048
     Dates: start: 20100601
  3. RITALIN [Suspect]
     Dosage: 20 MG, QD
     Route: 048
     Dates: start: 20100601
  4. RITALIN [Suspect]
     Dosage: 2-3 CAPSULES (20 MG)/DAY
     Route: 048
     Dates: start: 20100601
  5. LYRICA [Concomitant]

REACTIONS (3)
  - DRUG ABUSE [None]
  - DRUG INEFFECTIVE [None]
  - INCORRECT DOSE ADMINISTERED [None]
